FAERS Safety Report 8728343 (Version 2)
Quarter: 2012Q4

REPORT INFORMATION
  Report Type: 
  Country: JP (occurrence: JP)
  Receive Date: 20120817
  Receipt Date: 20120907
  Transmission Date: 20130627
  Serious: Yes (Hospitalization, Other)
  Sender: FDA-Public Use
  Company Number: JP-JNJFOC-20120805924

PATIENT
  Age: 8 None
  Sex: Male

DRUGS (2)
  1. TRAMCET [Suspect]
     Indication: PRODUCT USED FOR UNKNOWN INDICATION
     Dosage: one per one day
     Route: 048
     Dates: start: 20120803, end: 20120810
  2. LOXONIN [Concomitant]
     Dosage: one per one day
     Route: 048
     Dates: end: 20120810

REACTIONS (1)
  - Cardiac failure [Recovering/Resolving]
